FAERS Safety Report 13702246 (Version 1)
Quarter: 2017Q2

REPORT INFORMATION
  Report Type: Report from Study
  Country: US (occurrence: US)
  Receive Date: 20170629
  Receipt Date: 20170629
  Transmission Date: 20170830
  Serious: Yes (Death)
  Sender: FDA-Public Use
  Company Number: US-PFIZER INC-2017279865

PATIENT
  Age: 28 Year
  Sex: Male

DRUGS (5)
  1. COCAINE [Suspect]
     Active Substance: COCAINE
     Dosage: UNK
  2. BENZOYLECGONINE [Concomitant]
     Active Substance: BENZOYLECGONINE
     Dosage: UNK
  3. METHYLECGONINE [Concomitant]
     Active Substance: ECGONINE METHYL ESTER
     Dosage: UNK
  4. FENTANYL CITRATE. [Suspect]
     Active Substance: FENTANYL CITRATE
     Dosage: UNK
  5. LEVAMISOLE [Concomitant]
     Active Substance: LEVAMISOLE
     Dosage: UNK

REACTIONS (1)
  - Toxicity to various agents [Fatal]
